FAERS Safety Report 17386940 (Version 4)
Quarter: 2020Q1

REPORT INFORMATION
  Report Type: Spontaneous
  Country: US (occurrence: US)
  Receive Date: 20200206
  Receipt Date: 20200218
  Transmission Date: 20200409
  Serious: Yes (Hospitalization)
  Sender: FDA-Public Use
  Company Number: US-CELGENEUS-USA-20191208596

PATIENT
  Sex: Female

DRUGS (18)
  1. THALOMID [Suspect]
     Active Substance: THALIDOMIDE
     Dosage: 100-150 MILLIGRAM
     Route: 048
     Dates: start: 201103
  2. THALOMID [Suspect]
     Active Substance: THALIDOMIDE
     Dosage: 150-100 MILLIGRAM
     Route: 048
     Dates: start: 201305
  3. THALOMID [Suspect]
     Active Substance: THALIDOMIDE
     Dosage: 150-50 MILLIGRAM
     Route: 048
     Dates: start: 201604
  4. THALOMID [Suspect]
     Active Substance: THALIDOMIDE
     Indication: APHTHOUS ULCER
     Dosage: 100 MILLIGRAM
     Route: 048
     Dates: start: 200511
  5. THALOMID [Suspect]
     Active Substance: THALIDOMIDE
     Dosage: 100-50 MILLIGRAM
     Route: 048
     Dates: start: 200609
  6. THALOMID [Suspect]
     Active Substance: THALIDOMIDE
     Dosage: 100 MILLIGRAM
     Route: 048
     Dates: start: 201608
  7. THALOMID [Suspect]
     Active Substance: THALIDOMIDE
     Indication: OFF LABEL USE
     Dosage: 100-50 MILLIGRAM
     Route: 048
     Dates: start: 200604
  8. THALOMID [Suspect]
     Active Substance: THALIDOMIDE
     Dosage: 300-150 MILLIGRAM
     Route: 048
     Dates: start: 200909
  9. THALOMID [Suspect]
     Active Substance: THALIDOMIDE
     Dosage: 150-50 MILLIGRAM
     Route: 048
     Dates: start: 20100226
  10. THALOMID [Suspect]
     Active Substance: THALIDOMIDE
     Dosage: 50 MILLIGRAM (BLISTER PAK)
     Route: 048
     Dates: start: 201609
  11. THALOMID [Suspect]
     Active Substance: THALIDOMIDE
     Dosage: 150-100 MILLIGRAM
     Route: 048
     Dates: start: 200804
  12. THALOMID [Suspect]
     Active Substance: THALIDOMIDE
     Dosage: 150 MILLIGRAM
     Route: 048
     Dates: start: 201206
  13. THALOMID [Suspect]
     Active Substance: THALIDOMIDE
     Dosage: 50-150 MILLIGRAM
     Route: 048
     Dates: start: 200811
  14. THALOMID [Suspect]
     Active Substance: THALIDOMIDE
     Dosage: 50 MILLIGRAM
     Route: 048
     Dates: start: 201402
  15. THALOMID [Suspect]
     Active Substance: THALIDOMIDE
     Dosage: 150 MILLIGRAM
     Route: 048
     Dates: start: 201405
  16. THALOMID [Suspect]
     Active Substance: THALIDOMIDE
     Dosage: 100 MILLIGRAM
     Route: 048
     Dates: start: 20120227
  17. THALOMID [Suspect]
     Active Substance: THALIDOMIDE
     Dosage: 150 MILLIGRAM
     Route: 048
     Dates: start: 201410
  18. THALOMID [Suspect]
     Active Substance: THALIDOMIDE
     Dosage: 150 MILLIGRAM
     Route: 048
     Dates: start: 201511

REACTIONS (2)
  - Pneumonia [Recovered/Resolved with Sequelae]
  - Peptic ulcer [Recovered/Resolved with Sequelae]
